FAERS Safety Report 8561718-2 (Version None)
Quarter: 2012Q3

REPORT INFORMATION
  Report Type: 
  Country: None (occurrence: None)
  Receive Date: 20120802
  Receipt Date: 20120725
  Transmission Date: 20120928
  Serious: Yes (Death, Hospitalization)
  Sender: FDA-Public Use
  Company Number: TW-BAXTER-2012BAX010031

PATIENT

DRUGS (2)
  1. DIANEAL PD-2 W/ DEXTROSE 1.5% [Suspect]
     Route: 033
     Dates: end: 20120627
  2. DIANEAL PD-2 W/ DEXTROSE 2.5% [Suspect]
     Route: 033
     Dates: end: 20120627

REACTIONS (2)
  - SEPSIS [None]
  - RESPIRATORY FAILURE [None]
